FAERS Safety Report 5015114-5 (Version None)
Quarter: 2006Q2

REPORT INFORMATION
  Report Type: 
  Country: None (occurrence: None)
  Receive Date: 20060530
  Receipt Date: 20060511
  Transmission Date: 20061013
  Serious: Yes (Congenital Anomaly)
  Sender: FDA-Public Use
  Company Number: 8016540

PATIENT

DRUGS (1)
  1. KEPPRA [Suspect]
     Dosage: NI TRP

REACTIONS (2)
  - CONGENITAL BOWING OF LONG BONES [None]
  - DRUG EXPOSURE DURING PREGNANCY [None]
